FAERS Safety Report 14354337 (Version 2)
Quarter: 2018Q2

REPORT INFORMATION
  Report Type: Spontaneous
  Country: GB (occurrence: GB)
  Receive Date: 20180105
  Receipt Date: 20180423
  Transmission Date: 20180711
  Serious: Yes (Life-Threatening, Other)
  Sender: FDA-Public Use
  Company Number: GB-ASTRAZENECA-2018SE01273

PATIENT
  Age: 59 Year
  Sex: Female
  Weight: 70.9 kg

DRUGS (6)
  1. VENTOLIN [Concomitant]
     Active Substance: ALBUTEROL SULFATE
     Dosage: 1-2 UP TO 4 TIMES DAILY AS REQUIRED
     Route: 055
     Dates: start: 20161026
  2. SERETIDE [Concomitant]
     Active Substance: FLUTICASONE PROPIONATE\SALMETEROL XINAFOATE
     Route: 055
     Dates: start: 20171020, end: 20171220
  3. MONTELUKAST [Concomitant]
     Active Substance: MONTELUKAST SODIUM
     Dates: start: 20171020
  4. CICLESONIDE [Suspect]
     Active Substance: CICLESONIDE
     Dosage: 160.0UG/INHAL UNKNOWN
     Route: 055
  5. FLUCONAZOLE. [Concomitant]
     Active Substance: FLUCONAZOLE
     Dates: start: 20171102
  6. SYMBICORT [Concomitant]
     Active Substance: BUDESONIDE\FORMOTEROL FUMARATE DIHYDRATE
     Dosage: 2 DF DAILY
     Route: 055
     Dates: start: 20170518

REACTIONS (2)
  - Bronchospasm [Recovered/Resolved]
  - Asthma [Recovered/Resolved]

NARRATIVE: CASE EVENT DATE: 20171102
